FAERS Safety Report 4980313-5 (Version None)
Quarter: 2006Q2

REPORT INFORMATION
  Report Type: 
  Country: None (occurrence: None)
  Receive Date: 20060421
  Receipt Date: 20060421
  Transmission Date: 20061013
  Serious: No
  Sender: FDA-Public Use
  Company Number: None

PATIENT

DRUGS (2)
  1. BALANCED SALT SOLUTION [Suspect]
     Indication: CATARACT
  2. VISCOELASTIC ALCON [Suspect]

REACTIONS (3)
  - ANTERIOR CHAMBER DISORDER [None]
  - CATARACT OPERATION COMPLICATION [None]
  - EYE INFLAMMATION [None]
